FAERS Safety Report 19731013 (Version 4)
Quarter: 2021Q3

REPORT INFORMATION
  Report Type: Spontaneous
  Country: GR (occurrence: GR)
  Receive Date: 20210821
  Receipt Date: 20210923
  Transmission Date: 20211014
  Serious: Yes (Life-Threatening, Hospitalization, Disabling, Other)
  Sender: FDA-Public Use
  Company Number: GR-AUROBINDO-AUR-APL-2021-035476

PATIENT
  Age: 69 Year
  Sex: Female

DRUGS (10)
  1. CIDOFOVIR. [Suspect]
     Active Substance: CIDOFOVIR
     Indication: PROGRESSIVE MULTIFOCAL LEUKOENCEPHALOPATHY
     Dosage: UNK 3 (WEEKLY DOSES)
     Route: 065
  2. OBINUTUZUMAB. [Suspect]
     Active Substance: OBINUTUZUMAB
     Dosage: (SIX CYCLES)
     Route: 065
  3. RITUXIMAB. [Suspect]
     Active Substance: RITUXIMAB
     Indication: FOLLICULAR LYMPHOMA STAGE IV
     Dosage: MAINTENANCE THERAPY
     Route: 065
  4. BENDAMUSTINE HYDROCHLORIDE. [Suspect]
     Active Substance: BENDAMUSTINE HYDROCHLORIDE
     Indication: FOLLICULAR LYMPHOMA
     Dosage: UNK, CYCLICAL (SIX CYCLES)
     Route: 042
  5. CYTARABINE. [Suspect]
     Active Substance: CYTARABINE
     Indication: PROGRESSIVE MULTIFOCAL LEUKOENCEPHALOPATHY
     Dosage: FOUR DOSES
     Route: 037
  6. OBINUTUZUMAB. [Suspect]
     Active Substance: OBINUTUZUMAB
     Indication: FOLLICULAR LYMPHOMA
     Dosage: MAINTENANCE THERAPY
     Route: 065
  7. MIRTAZAPINE. [Suspect]
     Active Substance: MIRTAZAPINE
     Indication: PROGRESSIVE MULTIFOCAL LEUKOENCEPHALOPATHY
     Dosage: UNK
     Route: 048
  8. GAMMAGLOBULIN [Suspect]
     Active Substance: HUMAN IMMUNOGLOBULIN G
     Indication: PROGRESSIVE MULTIFOCAL LEUKOENCEPHALOPATHY
     Dosage: UNK
     Route: 042
  9. RITUXIMAB. [Suspect]
     Active Substance: RITUXIMAB
     Dosage: CYCLICAL ((EIGHT CYCLES) )
     Route: 065
  10. CHLORAMBUCIL [Concomitant]
     Active Substance: CHLORAMBUCIL
     Indication: FOLLICULAR LYMPHOMA STAGE IV
     Dosage: 8 CYCLES
     Route: 065

REACTIONS (7)
  - Cognitive disorder [Not Recovered/Not Resolved]
  - Off label use [Unknown]
  - Dysarthria [Not Recovered/Not Resolved]
  - Drug ineffective [Not Recovered/Not Resolved]
  - Hemiparesis [Not Recovered/Not Resolved]
  - Progressive multifocal leukoencephalopathy [Unknown]
  - Product use issue [Unknown]

NARRATIVE: CASE EVENT DATE: 2017
